FAERS Safety Report 10149688 (Version 1)
Quarter: 2014Q2

REPORT INFORMATION
  Report Type: Report from Study
  Country: NL (occurrence: NL)
  Receive Date: 20140502
  Receipt Date: 20140502
  Transmission Date: 20141212
  Serious: Yes (Death)
  Sender: FDA-Public Use
  Company Number: NL-B.I. PHARMACEUTICALS,INC./RIDGEFIELD-2014-BI-19331NL

PATIENT
  Age: 44 Year
  Sex: Female
  Weight: 80 kg

DRUGS (2)
  1. PRADAXA [Suspect]
     Indication: ISCHAEMIC STROKE
     Dosage: 300 MG
     Route: 065
     Dates: start: 201312
  2. PERINDOPRIL [Concomitant]
     Route: 065
     Dates: start: 2013

REACTIONS (5)
  - Brain herniation [Fatal]
  - Loss of consciousness [Fatal]
  - Fall [Fatal]
  - Subarachnoid haemorrhage [Fatal]
  - Haematoma [Fatal]
